FAERS Safety Report 25620223 (Version 2)
Quarter: 2025Q3

REPORT INFORMATION
  Report Type: Report from Study
  Country: US (occurrence: US)
  Receive Date: 20250730
  Receipt Date: 20250819
  Transmission Date: 20251020
  Serious: No
  Sender: DECIPHERA PHARMACEUTICALS
  Company Number: US-DECIPHERA PHARMACEUTICALS LLC-2025US000885

PATIENT
  Age: 59 Year
  Sex: Female
  Weight: 59.41 kg

DRUGS (1)
  1. QINLOCK [Suspect]
     Active Substance: RIPRETINIB
     Indication: Gastrointestinal stromal tumour
     Dosage: 150 MILLIGRAM, QD
     Dates: start: 20250516

REACTIONS (2)
  - Rhinitis allergic [Unknown]
  - Incision site complication [Unknown]

NARRATIVE: CASE EVENT DATE: 20250101
